FAERS Safety Report 16075678 (Version 1)
Quarter: 2019Q1

REPORT INFORMATION
  Report Type: Spontaneous
  Country: TR (occurrence: TR)
  Receive Date: 20190315
  Receipt Date: 20190315
  Transmission Date: 20190418
  Serious: Yes (Other)
  Sender: FDA-Public Use
  Company Number: TR-ACS-001348

PATIENT
  Age: 60 Year

DRUGS (1)
  1. CEFUROXIME. [Suspect]
     Active Substance: CEFUROXIME
     Indication: CATARACT OPERATION
     Dosage: 1 MG/01 ML
     Route: 031

REACTIONS (2)
  - Off label use [Unknown]
  - Retinal infarction [Unknown]
